FAERS Safety Report 20680059 (Version 5)
Quarter: 2024Q4

REPORT INFORMATION
  Report Type: Report from Study
  Country: US (occurrence: US)
  Receive Date: 20220406
  Receipt Date: 20241031
  Transmission Date: 20250115
  Serious: Yes (Hospitalization, Other)
  Sender: ROCHE
  Company Number: US-ROCHE-2729908

PATIENT
  Sex: Male

DRUGS (5)
  1. MYCOPHENOLATE MOFETIL [Suspect]
     Active Substance: MYCOPHENOLATE MOFETIL
     Indication: Myasthenia gravis
     Dosage: CELLCEPT-ORAL SUSPENSION 5ML BID
     Route: 048
  2. MYCOPHENOLATE MOFETIL [Suspect]
     Active Substance: MYCOPHENOLATE MOFETIL
     Indication: Myasthenia gravis
     Dosage: 2 TABS IN AM, 1 TAB IN PM
     Route: 048
  3. MYCOPHENOLATE MOFETIL [Suspect]
     Active Substance: MYCOPHENOLATE MOFETIL
     Dosage: 500MG 2 TABLETS AM AND 3 TABLETS PM
     Route: 048
  4. MYCOPHENOLATE MOFETIL [Suspect]
     Active Substance: MYCOPHENOLATE MOFETIL
     Route: 048
  5. MYCOPHENOLATE MOFETIL [Suspect]
     Active Substance: MYCOPHENOLATE MOFETIL
     Indication: Myasthenia gravis
     Dosage: 2 BID
     Route: 065

REACTIONS (14)
  - Speech disorder [Unknown]
  - Off label use [Unknown]
  - Blood test abnormal [Unknown]
  - Paralysis [Unknown]
  - Condition aggravated [Unknown]
  - Dysphonia [Unknown]
  - Spasmodic dysphonia [Unknown]
  - Malaise [Unknown]
  - Stress [Unknown]
  - Illness [Unknown]
  - Ill-defined disorder [Unknown]
  - Recurrent cancer [Unknown]
  - Intentional product misuse [Unknown]
  - Abscess [Unknown]
